FAERS Safety Report 8765475 (Version 1)
Quarter: 2012Q4

REPORT INFORMATION
  Report Type: 
  Country: GB (occurrence: GB)
  Receive Date: 20120902
  Receipt Date: 20120902
  Transmission Date: 20130627
  Serious: Yes (Other)
  Sender: FDA-Public Use
  Company Number: GB-PFIZER INC-2012213727

PATIENT
  Age: 51 Year
  Sex: Male

DRUGS (14)
  1. CORDARONE [Suspect]
     Indication: ATRIAL FIBRILLATION
     Dosage: 200 mg, daily
     Route: 048
  2. FENOFIBRATE [Concomitant]
     Dosage: UNK
  3. BISOPROLOL [Concomitant]
     Dosage: UNK
  4. SIMVASTATIN [Concomitant]
     Dosage: UNK
  5. WARFARIN [Concomitant]
     Dosage: UNK
  6. ALLOPURINOL [Concomitant]
     Dosage: UNK
  7. SPIRONOLACTONE [Concomitant]
     Dosage: UNK
  8. GLICLAZIDE [Concomitant]
     Dosage: UNK
  9. SALBUTAMOL [Concomitant]
     Dosage: UNK
  10. ANUSOL PLUS [Concomitant]
     Dosage: UNK
  11. LACTULOSE [Concomitant]
     Dosage: UNK
  12. SIMPLE LINCTUS [Concomitant]
     Dosage: UNK
  13. BUMETANIDE [Concomitant]
     Dosage: UNK
  14. ELECTROLYTES NOS/MACROGOL [Concomitant]
     Dosage: UNK

REACTIONS (4)
  - Hyperthyroidism [Recovering/Resolving]
  - Oedema [Recovering/Resolving]
  - Dyspnoea [Recovering/Resolving]
  - Exercise tolerance decreased [Recovering/Resolving]
